FAERS Safety Report 18996519 (Version 1)
Quarter: 2021Q1

REPORT INFORMATION
  Report Type: Spontaneous
  Country: US (occurrence: US)
  Receive Date: 20210305
  Receipt Date: 20210305
  Transmission Date: 20210420
  Serious: Yes (Other)
  Sender: FDA-Public Use
  Company Number: None

PATIENT
  Age: 55 Year
  Sex: Male
  Weight: 75.7 kg

DRUGS (1)
  1. VITAMIN D [Suspect]
     Active Substance: VITAMIN D NOS
     Indication: T-CELL LYMPHOMA
     Route: 048
     Dates: start: 20160610

REACTIONS (1)
  - Tumour pain [None]

NARRATIVE: CASE EVENT DATE: 20170524
